FAERS Safety Report 12995054 (Version 1)
Quarter: 2016Q4

REPORT INFORMATION
  Report Type: Spontaneous
  Country: US (occurrence: US)
  Receive Date: 20161202
  Receipt Date: 20161202
  Transmission Date: 20170207
  Serious: No
  Sender: FDA-Public Use
  Company Number: US-TEVA-717040ACC

PATIENT
  Age: 56 Year
  Sex: Female

DRUGS (10)
  1. ASPIRIN. [Concomitant]
     Active Substance: ASPIRIN
  2. VITAMIN D [Concomitant]
     Active Substance: CHOLECALCIFEROL
  3. FLAXSEED [Concomitant]
     Active Substance: FLAX SEED
  4. LIPITOR [Concomitant]
     Active Substance: ATORVASTATIN CALCIUM
  5. OXYBUTYNIN [Concomitant]
     Active Substance: OXYBUTYNIN
  6. TOPAMAX [Concomitant]
     Active Substance: TOPIRAMATE
  7. EFFEXOR XR [Concomitant]
     Active Substance: VENLAFAXINE HYDROCHLORIDE
  8. FERROUS SULF [Concomitant]
  9. MODAFINIL. [Concomitant]
     Active Substance: MODAFINIL
  10. COPAXONE [Suspect]
     Active Substance: GLATIRAMER ACETATE
     Indication: MULTIPLE SCLEROSIS
     Route: 058
     Dates: start: 20151022

REACTIONS (2)
  - Dizziness [Unknown]
  - Rash [Unknown]

NARRATIVE: CASE EVENT DATE: 201610
